FAERS Safety Report 8237540-3 (Version None)
Quarter: 2012Q1

REPORT INFORMATION
  Report Type: 
  Country: None (occurrence: None)
  Receive Date: 20120327
  Receipt Date: 20120323
  Transmission Date: 20120608
  Serious: No
  Sender: FDA-Public Use
  Company Number: US-PFIZER INC-2012076093

PATIENT
  Sex: Male
  Weight: 99.32 kg

DRUGS (4)
  1. GEODON [Suspect]
     Indication: ANXIETY
     Dosage: 40 MG, DAILY
  2. FINASTERIDE [Concomitant]
     Indication: PROSTATIC DISORDER
     Dosage: 5 MG, DAILY
  3. WELLBUTRIN [Concomitant]
     Indication: DEPRESSION
     Dosage: 300 MG, DAILY
  4. ALFUZOSIN [Concomitant]
     Indication: PROSTATIC DISORDER
     Dosage: 10 MG, DAILY

REACTIONS (2)
  - DRUG INEFFECTIVE [None]
  - TREMOR [None]
